FAERS Safety Report 8334486 (Version 2)
Quarter: 2012Q4

REPORT INFORMATION
  Report Type: Spontaneous
  Country: GB (occurrence: None)
  Receive Date: 20120105
  Receipt Date: 20120822
  Transmission Date: 20130627
  Serious: Yes (Life-Threatening)
  Sender: FDA-Public Use
  Company Number: 2011AP003156

PATIENT
  Age: 65 Year
  Sex: Male

DRUGS (13)
  1. LEFLUNOMIDE [Suspect]
  2. AMLODIPINE [Concomitant]
  3. ASPIRIN [Concomitant]
  4. BENDROFLUMETHIAZIDE (BENDROFLUMETHIAZIDE) [Concomitant]
  5. CITALOPRAM HYDROBROMIDE [Concomitant]
  6. OMEPRAZOLE [Concomitant]
  7. PREDNISONE [Concomitant]
  8. PREGABALIN [Concomitant]
  9. ALBUTEROL SULFATE [Concomitant]
  10. SERETIDE (SERETIDE) [Concomitant]
  11. SIMVASTATIN [Concomitant]
  12. TAMSULOSIN HYDROCHLORIDE [Concomitant]
  13. TIOTROPIUM BROMIDE (TIOTROPIUM BROMIDE) [Concomitant]

REACTIONS (1)
  - CEREBROVASCULAR ACCIDENT [None]
